FAERS Safety Report 6492422-2 (Version None)
Quarter: 2009Q4

REPORT INFORMATION
  Report Type: 
  Country: None (occurrence: None)
  Receive Date: 20091214
  Receipt Date: 20091202
  Transmission Date: 20100525
  Serious: Yes (Other)
  Sender: FDA-Public Use
  Company Number: MA-ROCHE-669176

PATIENT
  Age: 65 Year
  Sex: Male
  Weight: 76 kg

DRUGS (4)
  1. PEG-INTERFERON A-2A (RO 25-8310) [Suspect]
     Indication: HEPATITIS C
     Route: 065
  2. RIBAVIRIN [Suspect]
     Indication: HEPATITIS C
     Route: 065
  3. ZYLORIC [Suspect]
     Indication: HYPERURICAEMIA
     Route: 065
  4. INSULIN [Concomitant]
     Dosage: DRUG NAME: SUSTAINED RELEASE INSULIN

REACTIONS (2)
  - CYTOLYTIC HEPATITIS [None]
  - HYPERURICAEMIA [None]
